FAERS Safety Report 15230278 (Version 1)
Quarter: 2018Q3

REPORT INFORMATION
  Report Type: Spontaneous
  Country: US (occurrence: US)
  Receive Date: 20180802
  Receipt Date: 20180802
  Transmission Date: 20181010
  Serious: Yes (Other)
  Sender: FDA-Public Use
  Company Number: US-ACCORD-063384

PATIENT
  Age: 53 Year
  Sex: Female
  Weight: 173 kg

DRUGS (10)
  1. DOCETAXEL ACCORD [Suspect]
     Active Substance: DOCETAXEL
     Indication: OVARIAN CANCER
     Dosage: NO OF CYCLE: 12??ALSO RECEIVED 140 MG
     Route: 042
     Dates: start: 20140130, end: 20141223
  2. IRON [Concomitant]
     Active Substance: IRON
     Dates: start: 20140227
  3. ZOFRAN [Concomitant]
     Active Substance: ONDANSETRON HYDROCHLORIDE
     Route: 042
     Dates: start: 20140304
  4. PARAPLATIN [Suspect]
     Active Substance: CARBOPLATIN
     Indication: OVARIAN CANCER
     Dosage: NO OF CYCLE: 12
     Route: 042
     Dates: start: 20140130, end: 20141223
  5. DARBEPOETIN ALFA [Concomitant]
     Active Substance: DARBEPOETIN ALFA
     Route: 058
     Dates: start: 20140227
  6. PEPCID [Concomitant]
     Active Substance: FAMOTIDINE
     Route: 042
     Dates: start: 20140130
  7. DECADRON [Concomitant]
     Active Substance: DEXAMETHASONE
     Route: 042
     Dates: start: 20140130
  8. ALOXI [Concomitant]
     Active Substance: PALONOSETRON HYDROCHLORIDE
     Dosage: SOLUTION SIZE: 50
     Route: 042
     Dates: start: 20140130
  9. BENADRYL [Concomitant]
     Active Substance: DIPHENHYDRAMINE HYDROCHLORIDE
     Route: 042
     Dates: start: 20140130
  10. NEULASTA [Concomitant]
     Active Substance: PEGFILGRASTIM
     Route: 042
     Dates: start: 20140130

REACTIONS (2)
  - Off label use [Unknown]
  - Alopecia [Not Recovered/Not Resolved]

NARRATIVE: CASE EVENT DATE: 201506
